FAERS Safety Report 19322232 (Version 1)
Quarter: 2021Q2

REPORT INFORMATION
  Report Type: Spontaneous
  Country: GB (occurrence: GB)
  Receive Date: 20210528
  Receipt Date: 20210528
  Transmission Date: 20210717
  Serious: Yes (Other)
  Sender: FDA-Public Use
  Company Number: GB-TAKEDA-2021TUS004413

PATIENT
  Age: 46 Year
  Sex: Female

DRUGS (2)
  1. VEDOLIZUMAB [Suspect]
     Active Substance: VEDOLIZUMAB
     Dosage: 300 MILLIGRAM
     Route: 042
     Dates: start: 20200929
  2. VEDOLIZUMAB [Suspect]
     Active Substance: VEDOLIZUMAB
     Indication: PRODUCT USED FOR UNKNOWN INDICATION
     Dosage: 300 MILLIGRAM
     Route: 042
     Dates: start: 20200929

REACTIONS (8)
  - Pain [Unknown]
  - Gastrointestinal inflammation [Unknown]
  - Abdominal discomfort [Unknown]
  - Neuralgia [Unknown]
  - Lower respiratory tract infection [Unknown]
  - Wheezing [Unknown]
  - Treatment delayed [Unknown]
  - Abdominal distension [Unknown]
